FAERS Safety Report 8466514-2 (Version None)
Quarter: 2012Q2

REPORT INFORMATION
  Report Type: 
  Country: None (occurrence: None)
  Receive Date: 20120626
  Receipt Date: 20120619
  Transmission Date: 20120825
  Serious: Yes (Death, Hospitalization)
  Sender: FDA-Public Use
  Company Number: US-ACTELION-A-NJ2012-64546

PATIENT

DRUGS (5)
  1. VENTAVIS [Suspect]
     Indication: PULMONARY ARTERIAL HYPERTENSION
     Dosage: 5 MCG X 6/DAY
     Route: 055
     Dates: start: 20120514, end: 20120601
  2. SILDENAFIL [Concomitant]
  3. TYVASO [Concomitant]
  4. VENTAVIS [Suspect]
     Dosage: 5 MCG X 6/DAY
     Route: 055
     Dates: start: 20101206, end: 20120301
  5. VENTAVIS [Suspect]
     Dosage: 2.5 MCG, ONCE
     Route: 055
     Dates: start: 20101206, end: 20101206

REACTIONS (9)
  - RESPIRATORY FAILURE [None]
  - PULMONARY ARTERIAL HYPERTENSION [None]
  - COUGH [None]
  - OROPHARYNGEAL PAIN [None]
  - DISEASE PROGRESSION [None]
  - GENERAL PHYSICAL HEALTH DETERIORATION [None]
  - DYSPNOEA [None]
  - LOCALISED INFECTION [None]
  - ASTHENIA [None]
